FAERS Safety Report 7210628-1 (Version None)
Quarter: 2011Q1

REPORT INFORMATION
  Report Type: 
  Country: None (occurrence: None)
  Receive Date: 20110105
  Receipt Date: 20101223
  Transmission Date: 20110831
  Serious: Yes (Hospitalization)
  Sender: FDA-Public Use
  Company Number: US-ELI_LILLY_AND_COMPANY-US201012006672

PATIENT
  Sex: Female
  Weight: 51.7 kg

DRUGS (19)
  1. ASPIRIN [Concomitant]
     Dosage: 81 MG, DAILY (1/D)
     Dates: start: 20081116, end: 20081231
  2. ASPIRIN [Concomitant]
     Dosage: 325 MG, DAILY (1/D)
     Dates: start: 20090101, end: 20090101
  3. ASPIRIN [Concomitant]
     Dosage: 81 MG, DAILY (1/D)
     Dates: start: 20090102, end: 20090109
  4. NITROGLYCERIN [Concomitant]
     Indication: CORONARY ARTERY DISEASE
     Dates: start: 20081111
  5. TUMS [Concomitant]
     Indication: GASTRITIS
     Dates: start: 20100401
  6. SIMVASTATIN [Concomitant]
     Indication: CORONARY ARTERY DISEASE
     Dates: start: 20090513
  7. ASPIRIN [Concomitant]
     Dosage: 81 MG, DAILY (1/D)
     Dates: start: 20090114
  8. ASPIRIN [Concomitant]
     Dosage: 81 MG, DAILY (1/D)
     Dates: start: 20081114, end: 20081116
  9. COLACE [Concomitant]
     Indication: HELICOBACTER INFECTION
     Dates: start: 20040101
  10. ACETAMINOPHEN [Concomitant]
     Indication: PROPHYLAXIS
     Dates: start: 20081111
  11. OMEPRAZOLE [Concomitant]
     Indication: GASTRITIS
     Dates: start: 20101027
  12. PRASUGREL HYDROCHLORIDE [Suspect]
     Dates: start: 20100319
  13. ASPIRIN [Concomitant]
     Dosage: 162 MG, DAILY (1/D)
     Dates: start: 20081111, end: 20081111
  14. LEXAPRO [Concomitant]
     Indication: DEPRESSION
     Dates: start: 20040101
  15. LOPRESSOR [Concomitant]
     Indication: CORONARY ARTERY DISEASE
     Dates: start: 20090513
  16. PRASUGREL HYDROCHLORIDE [Suspect]
     Indication: ACUTE CORONARY SYNDROME
     Dates: start: 20081111, end: 20100317
  17. ASPIRIN [Concomitant]
     Dosage: 325 MG, DAILY (1/D)
     Dates: start: 20090110, end: 20090113
  18. LEVOXYL [Concomitant]
     Indication: HYPOTHYROIDISM
     Dates: start: 20040101
  19. IMDUR [Concomitant]
     Indication: CORONARY ARTERY DISEASE
     Dates: start: 20090513

REACTIONS (1)
  - ACUTE MYOCARDIAL INFARCTION [None]
